FAERS Safety Report 10108573 (Version 1)
Quarter: 2014Q2

REPORT INFORMATION
  Report Type: Report from Study
  Country: DK (occurrence: DK)
  Receive Date: 20140425
  Receipt Date: 20140425
  Transmission Date: 20141212
  Serious: Yes (Death, Congenital Anomaly)
  Sender: FDA-Public Use
  Company Number: DK-ACCORD-023234

PATIENT
  Sex: 0

DRUGS (1)
  1. LEVETIRACETAM [Suspect]
     Indication: EPILEPSY
     Dosage: DAILY DOSE: 500 (UNSPECIFIED UNITS) IN THE FIRST TRIMESTER
     Route: 064

REACTIONS (3)
  - Atrial septal defect [Fatal]
  - Coarctation of the aorta [Fatal]
  - Foetal exposure during pregnancy [Recovered/Resolved]
